FAERS Safety Report 4705031-X (Version None)
Quarter: 2005Q2

REPORT INFORMATION
  Report Type: 
  Country: None (occurrence: None)
  Receive Date: 20050630
  Receipt Date: 20050630
  Transmission Date: 20051028
  Serious: No
  Sender: FDA-Public Use
  Company Number: None

PATIENT
  Age: 56 Year
  Sex: Male

DRUGS (2)
  1. TRAMADOL [Suspect]
  2. SERTRALINE [Suspect]

REACTIONS (5)
  - ANXIETY [None]
  - DIZZINESS [None]
  - SEROTONIN SYNDROME [None]
  - SLUGGISHNESS [None]
  - SOMNOLENCE [None]
